FAERS Safety Report 5022982-X (Version None)
Quarter: 2006Q2

REPORT INFORMATION
  Report Type: 
  Country: None (occurrence: None)
  Receive Date: 20060426
  Receipt Date: 20060105
  Transmission Date: 20061013
  Serious: Yes (Other)
  Sender: FDA-Public Use
  Company Number: 2006004816

PATIENT
  Age: 82 Year
  Sex: Female
  Weight: 56.246 kg

DRUGS (10)
  1. LYRICA [Suspect]
     Indication: ILL-DEFINED DISORDER
     Dosage: ORAL
     Route: 048
     Dates: start: 20051115
  2. LEVOXYL [Concomitant]
  3. FELODIPINE [Concomitant]
  4. ASPIRIN [Concomitant]
  5. GLUCOSAMINE W/CHONDROITIN SULFATES (ASCORBIC ACID, CHONDROITIN SULFATE [Concomitant]
  6. MULTIVITAMIN [Concomitant]
  7. ALL OTHER THERAPEUTIC PRODUCTS(ALL OTHER THERAPEUTIC PRODUCTS) [Concomitant]
  8. STOOL SOFTENER (DOCUSATE SODIUM) [Concomitant]
  9. TRAMADOL HCL [Concomitant]
  10. ACETAMINOPHEN [Concomitant]

REACTIONS (2)
  - VISION BLURRED [None]
  - WEIGHT INCREASED [None]
